FAERS Safety Report 15319330 (Version 1)
Quarter: 2018Q3

REPORT INFORMATION
  Report Type: Spontaneous
  Country: IT (occurrence: IT)
  Receive Date: 20180827
  Receipt Date: 20180827
  Transmission Date: 20181010
  Serious: Yes (Other)
  Sender: FDA-Public Use
  Company Number: IT-LUPIN PHARMACEUTICALS INC.-2018-05995

PATIENT
  Age: 71 Year
  Sex: Female
  Weight: 48 kg

DRUGS (23)
  1. FENTANYL TRANSDERMAL SYSTEM [Suspect]
     Active Substance: FENTANYL
     Indication: BONE PAIN
     Dosage: 300 MCG/H, UNK
     Route: 062
  2. MORPHINE [Suspect]
     Active Substance: MORPHINE
     Indication: BONE PAIN
     Dosage: UNK, QD, 5?6 DAILY ADMINISTRATIONS (540MG DAILY OF MORPHINE ORAL CONTROLLED RELEASE)
     Route: 048
  3. MORPHINE [Suspect]
     Active Substance: MORPHINE
     Indication: PELVIC PAIN
     Dosage: PROGRESSIVE INCREASES IN MORPHINE DOSES
     Route: 065
  4. HYDROMORPHONE [Suspect]
     Active Substance: HYDROMORPHONE
     Indication: BONE PAIN
     Dosage: UNK
     Route: 048
  5. HYDROMORPHONE [Suspect]
     Active Substance: HYDROMORPHONE
     Indication: PELVIC PAIN
  6. FENTANYL TRANSDERMAL SYSTEM [Suspect]
     Active Substance: FENTANYL
     Indication: PELVIC PAIN
  7. TAPENTADOL [Suspect]
     Active Substance: TAPENTADOL
     Indication: SPINAL PAIN
  8. TAPENTADOL [Suspect]
     Active Substance: TAPENTADOL
     Indication: PELVIC PAIN
  9. METHADONE [Suspect]
     Active Substance: METHADONE HYDROCHLORIDE
     Indication: BONE PAIN
     Dosage: UNK
     Route: 048
  10. METHYLPREDNISOLONE. [Concomitant]
     Active Substance: METHYLPREDNISOLONE
     Indication: PELVIC PAIN
  11. KETOPROFEN. [Concomitant]
     Active Substance: KETOPROFEN
     Indication: SPINAL PAIN
  12. MIDAZOLAM [Concomitant]
     Active Substance: MIDAZOLAM HYDROCHLORIDE
     Indication: PRODUCT USED FOR UNKNOWN INDICATION
     Dosage: UNK
     Route: 065
  13. HYDROMORPHONE [Suspect]
     Active Substance: HYDROMORPHONE
     Indication: SPINAL PAIN
  14. METHYLPREDNISOLONE. [Concomitant]
     Active Substance: METHYLPREDNISOLONE
     Indication: BONE PAIN
     Dosage: 25 MG, QD
     Route: 048
  15. KETOPROFEN. [Concomitant]
     Active Substance: KETOPROFEN
     Indication: PELVIC PAIN
  16. METHYLPREDNISOLONE. [Concomitant]
     Active Substance: METHYLPREDNISOLONE
     Indication: SPINAL PAIN
  17. MORPHINE [Suspect]
     Active Substance: MORPHINE
     Dosage: 540 MG, QD
     Route: 048
  18. TAPENTADOL [Suspect]
     Active Substance: TAPENTADOL
     Indication: BONE PAIN
     Dosage: UNK
     Route: 048
  19. METHADONE [Suspect]
     Active Substance: METHADONE HYDROCHLORIDE
     Indication: SPINAL PAIN
  20. MORPHINE [Suspect]
     Active Substance: MORPHINE
     Indication: SPINAL PAIN
     Dosage: 100 MG, SUBCUTANEOUS PUMP
  21. FENTANYL TRANSDERMAL SYSTEM [Suspect]
     Active Substance: FENTANYL
     Indication: SPINAL PAIN
  22. METHADONE [Suspect]
     Active Substance: METHADONE HYDROCHLORIDE
     Indication: PELVIC PAIN
  23. KETOPROFEN. [Concomitant]
     Active Substance: KETOPROFEN
     Indication: BONE PAIN
     Dosage: 60 MG, QD
     Route: 048

REACTIONS (6)
  - Drug hypersensitivity [Unknown]
  - Delirium [Unknown]
  - Vomiting [Unknown]
  - Hyperaesthesia [Unknown]
  - Drug resistance [Unknown]
  - Nausea [Unknown]
